FAERS Safety Report 14436506 (Version 1)
Quarter: 2018Q1

REPORT INFORMATION
  Report Type: Spontaneous
  Country: US (occurrence: US)
  Receive Date: 20180125
  Receipt Date: 20180125
  Transmission Date: 20180509
  Serious: No
  Sender: FDA-Public Use
  Company Number: US-BIOGEN-2017BI00401669

PATIENT
  Age: 54 Year
  Sex: Male

DRUGS (3)
  1. ZINBRYTA [Suspect]
     Active Substance: DACLIZUMAB
     Route: 058
     Dates: start: 20170505
  2. ZINBRYTA [Suspect]
     Active Substance: DACLIZUMAB
     Route: 058
  3. ZINBRYTA [Suspect]
     Active Substance: DACLIZUMAB
     Indication: MULTIPLE SCLEROSIS
     Route: 065
     Dates: start: 20170426

REACTIONS (8)
  - Chest discomfort [Unknown]
  - Abdominal discomfort [Unknown]
  - Musculoskeletal pain [Recovered/Resolved]
  - Bladder disorder [Not Recovered/Not Resolved]
  - Vomiting [Unknown]
  - Muscle spasms [Recovered/Resolved]
  - Nausea [Unknown]
  - Bladder spasm [Not Recovered/Not Resolved]

NARRATIVE: CASE EVENT DATE: 20170507
